FAERS Safety Report 6148940-X (Version None)
Quarter: 2009Q2

REPORT INFORMATION
  Report Type: 
  Country: None (occurrence: None)
  Receive Date: 20090406
  Receipt Date: 20090323
  Transmission Date: 20091009
  Serious: Yes (Hospitalization)
  Sender: FDA-Public Use
  Company Number: 2009BI005147

PATIENT
  Age: 67 Year
  Sex: Female

DRUGS (4)
  1. ZEVALIN [Suspect]
     Indication: B-CELL SMALL LYMPHOCYTIC LYMPHOMA
     Dosage: ;1X;IV
     Route: 042
     Dates: start: 20090108, end: 20090108
  2. MABTHERA [Concomitant]
  3. FLUDARABINE PHOSPHATE [Concomitant]
  4. CYCLOPHOSPHAMIDE [Concomitant]

REACTIONS (2)
  - INTERSTITIAL LUNG DISEASE [None]
  - NEUTROPENIA [None]
